FAERS Safety Report 4437276-0 (Version None)
Quarter: 2004Q3

REPORT INFORMATION
  Report Type: 
  Country: None (occurrence: None)
  Receive Date: 20040827
  Receipt Date: 20040811
  Transmission Date: 20050211
  Serious: Yes (Hospitalization)
  Sender: FDA-Public Use
  Company Number: K200401262

PATIENT
  Age: 50 Year
  Sex: Male

DRUGS (1)
  1. EPIPEN [Suspect]
     Indication: ARTHROPOD STING
     Dosage: 0.3 MG, SINGLE,
     Dates: start: 20040701, end: 20040701

REACTIONS (3)
  - ARTERIOSPASM CORONARY [None]
  - MEDICATION ERROR [None]
  - MYOCARDIAL INFARCTION [None]
